FAERS Safety Report 22066939 (Version 1)
Quarter: 2023Q1

REPORT INFORMATION
  Report Type: Spontaneous
  Country: CN (occurrence: CN)
  Receive Date: 20230306
  Receipt Date: 20230306
  Transmission Date: 20230418
  Serious: Yes (Other)
  Sender: FDA-Public Use
  Company Number: None

PATIENT
  Age: 27 Year
  Sex: Female
  Weight: 46 kg

DRUGS (21)
  1. CYCLOPHOSPHAMIDE [Suspect]
     Active Substance: CYCLOPHOSPHAMIDE
     Indication: Choriocarcinoma
     Dosage: AS A PART OF 1-9 EMA-CO CHEMOTHERAPY, QD
     Route: 041
  2. CYCLOPHOSPHAMIDE [Suspect]
     Active Substance: CYCLOPHOSPHAMIDE
     Dosage: AS A PART OF 10TH EMA-CO CHEMOTHERAPY: AT 14:10, 0.88 G, QD, DILUTED 500 ML SODIUM CHLORIDE
     Route: 041
     Dates: start: 20230224, end: 20230224
  3. SODIUM CHLORIDE [Suspect]
     Active Substance: SODIUM CHLORIDE
     Indication: Vehicle solution use
     Dosage: AS PART OF 10TH EMA-CO CHEMOTHERAPY : AT 19: 46, 500 ML, QD USED TO DILUTE 148 MG METHOTREXATE, (6 H
     Route: 042
     Dates: start: 20230217, end: 20230217
  4. SODIUM CHLORIDE [Suspect]
     Active Substance: SODIUM CHLORIDE
     Dosage: AS PART OF 10TH EMA-CO CHEMOTHERAPY: 250 ML, QD USED TO DILUTE 0.148G ETOPOSIDE
     Route: 041
     Dates: start: 20230217, end: 20230218
  5. ETOPOSIDE [Suspect]
     Active Substance: ETOPOSIDE
     Indication: Choriocarcinoma
     Dosage: AS A PART OF 1-9 EMA-CO CHEMOTHERAPY
     Route: 041
  6. ETOPOSIDE [Suspect]
     Active Substance: ETOPOSIDE
     Dosage: AS PART OF 10TH EMA-CO CHEMOTHERAPY: 0.148G, QD, DILUTED WITH 0.9 % SODIUM CHLORIDE 250ML
     Route: 041
     Dates: start: 20230217, end: 20230218
  7. DACTINOMYCIN [Suspect]
     Active Substance: DACTINOMYCIN
     Indication: Choriocarcinoma
     Dosage: AS PART OF 1-9 EMA-CO CHEMOTHERAPY
     Route: 041
  8. DACTINOMYCIN [Suspect]
     Active Substance: DACTINOMYCIN
     Dosage: AS PART OF 10TH EMA-CO CHEMOTHERAPY, 0.5 MG, QD, DILUTED WITH 0.9% SODIUM CHLORIDE 250ML
     Route: 041
     Dates: start: 20230217, end: 20230218
  9. METHOTREXATE [Suspect]
     Active Substance: METHOTREXATE
     Indication: Choriocarcinoma
     Dosage: AS PART OF 1-9 EMA-CO CHEMOTHERAPY
     Route: 041
  10. METHOTREXATE [Suspect]
     Active Substance: METHOTREXATE
     Dosage: AS PART OF  10TH EMA-CO CHEMOTHERAPY: AT 13: 18, 148 MG, QD DILUTED WITH 30 ML(STRENGTH: 50 ML) SODI
     Route: 042
     Dates: start: 20230217, end: 20230217
  11. METHOTREXATE [Suspect]
     Active Substance: METHOTREXATE
     Dosage: AS PART OF 10TH EMA-CO CHEMOTHERAPY :AT 13: 22, 148 MG, QD DILUTED WITH 500 ML SODIUM CHLORIDE, (6 H
     Route: 041
     Dates: start: 20230217, end: 20230217
  12. METHOTREXATE [Suspect]
     Active Substance: METHOTREXATE
     Dosage: AS A PART OF 10TH EMA-CO CHEMOTHERAPY : AT 19: 46, 148 MG, QD DILUTED WITH 500 ML SODIUM CHLORIDE, (
     Route: 041
     Dates: start: 20230217, end: 20230217
  13. VINCRISTINE SULFATE [Suspect]
     Active Substance: VINCRISTINE SULFATE
     Indication: Choriocarcinoma
     Dosage: AS PART OF 1-9 EMA-CO CHEMOTHERAPY
     Route: 042
  14. VINCRISTINE SULFATE [Suspect]
     Active Substance: VINCRISTINE SULFATE
     Dosage: AS A PART OF 10TH EMA-CO CHEMOTHERAPY: AT 11:13, 2 MG, QD, DILUTED WITH 30 ML (STRENGTH 50 ML) SODIU
     Route: 042
     Dates: start: 20230224, end: 20230224
  15. SODIUM CHLORIDE [Suspect]
     Active Substance: SODIUM CHLORIDE
     Indication: Medication dilution
     Dosage: AS PART OF 10TH EMA-CO CHEMOTHERAPY: AT 13: 18, 30 ML(STRENGTH:50 ML), QD USED TO DILUTE 148 MG METH
     Route: 042
     Dates: start: 20230217, end: 20230217
  16. SODIUM CHLORIDE [Suspect]
     Active Substance: SODIUM CHLORIDE
     Dosage: AS PART OF 10TH EMA-CO CHEMOTHERAPY :AT 13: 22, 500 ML, QD USED TO DILUTE 148 MG METHOTREXATE, (6 HO
     Route: 041
     Dates: start: 20230217, end: 20230217
  17. SODIUM CHLORIDE [Suspect]
     Active Substance: SODIUM CHLORIDE
     Dosage: AS PART OF 10TH EMA-CO CHEMOTHERAPY, 250 ML, QD USED TO DILUTE 0.5 MG DACTINOMYCIN
     Route: 041
     Dates: start: 20230217, end: 20230218
  18. SODIUM CHLORIDE [Suspect]
     Active Substance: SODIUM CHLORIDE
     Dosage: AS A PART OF 10TH EMA-CO CHEMOTHERAPY: AT 11:13, 30 ML, QD (STRENGTH 50 ML) USED TO DILUTE 2 MG VINC
     Route: 042
     Dates: start: 20230224, end: 20230224
  19. SODIUM CHLORIDE [Suspect]
     Active Substance: SODIUM CHLORIDE
     Dosage: AS A PART OF 10TH EMA-CO CHEMOTHERAPY: AT 14:10, 500 ML, QD USED TO DILUTE 0.88G CYCLOPHOSPHAMIDE
     Route: 041
     Dates: start: 20230224, end: 20230224
  20. LEUCOVORIN CALCIUM [Concomitant]
     Active Substance: LEUCOVORIN CALCIUM
     Indication: Detoxification
     Dosage: 15 MG, Q12H, DILUTED WITH SODIUM 4 ML OF SODIUM CHLORIDE (0.9%: 10ML) (4 TIMES AFTER 24 HOURS OF INT
     Route: 030
     Dates: start: 20230219, end: 20230220
  21. SODIUM CHLORIDE [Concomitant]
     Active Substance: SODIUM CHLORIDE
     Indication: Medication dilution
     Dosage: 4ML, Q21H, USED TO DILUTE 15 MG CALCIUM FOLINATE(4 TIMES AFTER 24 HOURS OF INTRAVENOUS MTX INJECTION
     Route: 030
     Dates: start: 20230219, end: 20230220

REACTIONS (3)
  - White blood cell count decreased [Recovering/Resolving]
  - Neutrophil count decreased [Recovering/Resolving]
  - Myelosuppression [Recovering/Resolving]

NARRATIVE: CASE EVENT DATE: 20230219
